FAERS Safety Report 4875938-1 (Version None)
Quarter: 2005Q4

REPORT INFORMATION
  Report Type: 
  Country: None (occurrence: None)
  Receive Date: 20051205
  Receipt Date: 20050907
  Transmission Date: 20060501
  Serious: No
  Sender: FDA-Public Use
  Company Number: USA0509107403

PATIENT
  Sex: Male

DRUGS (3)
  1. ALIMTA [Suspect]
     Indication: LUNG NEOPLASM MALIGNANT
  2. DEXAMETHASONE TAB [Concomitant]
  3. AVASTIN [Concomitant]

REACTIONS (1)
  - ABDOMINAL PAIN UPPER [None]
